FAERS Safety Report 18322433 (Version 2)
Quarter: 2020Q4

REPORT INFORMATION
  Report Type: Spontaneous
  Country: IT (occurrence: IT)
  Receive Date: 20200928
  Receipt Date: 20201012
  Transmission Date: 20210113
  Serious: Yes (Hospitalization, Other)
  Sender: FDA-Public Use
  Company Number: IT-JNJFOC-20200926721

PATIENT
  Age: 43 Year
  Sex: Female

DRUGS (11)
  1. MEGLUMINE                          /00082702/ [Suspect]
     Active Substance: METFORMIN HYDROCHLORIDE
     Indication: HEADACHE
     Route: 030
  2. MORPHINE [Suspect]
     Active Substance: MORPHINE
     Indication: HEADACHE
     Dosage: DRIP; STARTED AT THE AGE OF 20 YEARS
     Route: 065
  3. OXYCODONE W/APAP [Suspect]
     Active Substance: ACETAMINOPHEN\OXYCODONE HYDROCHLORIDE
     Indication: HEADACHE
     Dosage: STARTED AT THE AGE OF 35 YEARS; UP TO 40 TABLETS PER DAY
     Route: 065
  4. INDOMETHACIN                       /00003801/ [Suspect]
     Active Substance: INDOMETHACIN
     Indication: HEADACHE
     Dosage: STARTED AT THE AGE OF 20 YEARS
     Route: 065
  5. PARACETAMOL/CODEINE [Suspect]
     Active Substance: ACETAMINOPHEN\CODEINE PHOSPHATE
     Indication: HEADACHE
     Dosage: STARTED AT THE AGE OF 33-34 YEARS; UP TO 20 TABLETS PER DAY
     Route: 065
  6. DUROGESIC [Suspect]
     Active Substance: FENTANYL
     Indication: HEADACHE
     Dosage: STARTED AT THE AGE OF 40-43 YEARS
     Route: 065
  7. PARACETAMOL/CODEINE [Suspect]
     Active Substance: ACETAMINOPHEN\CODEINE PHOSPHATE
     Indication: HEADACHE
     Dosage: STARTED AT THE AGE OF 27 YEARS
     Route: 065
  8. OXYCODONE W/APAP [Suspect]
     Active Substance: ACETAMINOPHEN\OXYCODONE HYDROCHLORIDE
     Dosage: STARTED AT THE AGE OF 27 YEARS
     Route: 065
  9. NOVALGINA [Suspect]
     Active Substance: METAMIZOLE SODIUM
     Indication: HEADACHE
     Dosage: STARTED AT THE AGE OF 4 YEARS
     Route: 065
  10. TOPIRAMATE. [Suspect]
     Active Substance: TOPIRAMATE
     Indication: HEADACHE
     Dosage: STARTED AT THE AGE OF 27 YEARS
     Route: 065
  11. MORPHINE [Suspect]
     Active Substance: MORPHINE
     Indication: HEADACHE
     Dosage: STARTED AT THE AGE OF 33-34 YEARS
     Route: 065

REACTIONS (6)
  - Gastric ulcer [Unknown]
  - Intentional product misuse [Unknown]
  - Drug abuse [Unknown]
  - Intentional overdose [Unknown]
  - Duodenal ulcer [Unknown]
  - Gastric haemorrhage [Unknown]
